FAERS Safety Report 7801902 (Version 3)
Quarter: 2016Q2

REPORT INFORMATION
  Report Type: Report from Study
  Country: US (occurrence: US)
  Receive Date: 20110207
  Receipt Date: 20160418
  Transmission Date: 20160815
  Serious: Yes (Other)
  Sender: FDA-Public Use
  Company Number: US-SANOFI-AVENTIS-2011SA007050

PATIENT
  Age: 66 Year
  Sex: Female

DRUGS (4)
  1. GLYBURIDE. [Suspect]
     Active Substance: GLYBURIDE
     Route: 065
  2. SOLOSTAR [Concomitant]
     Active Substance: DEVICE
     Indication: TYPE 2 DIABETES MELLITUS
  3. LANTUS SOLOSTAR [Suspect]
     Active Substance: INSULIN GLARGINE
     Indication: TYPE 2 DIABETES MELLITUS
     Dosage: 40 U IN AM AND 50 U AT HS
     Route: 058
  4. LANTUS SOLOSTAR [Suspect]
     Active Substance: INSULIN GLARGINE
     Indication: TYPE 2 DIABETES MELLITUS
     Dosage: DOSE:140 UNIT(S)
     Route: 058

REACTIONS (5)
  - Myocardial infarction [Unknown]
  - Cardiac failure congestive [Recovering/Resolving]
  - Blood glucose increased [Unknown]
  - Product use issue [Unknown]
  - Injection site bruising [Unknown]

NARRATIVE: CASE EVENT DATE: 201001
